FAERS Safety Report 9538345 (Version 1)
Quarter: 2013Q3

REPORT INFORMATION
  Report Type: Report from Study
  Country: CA (occurrence: CA)
  Receive Date: 20130920
  Receipt Date: 20130920
  Transmission Date: 20140515
  Serious: Yes (Life-Threatening, Hospitalization, Other)
  Sender: FDA-Public Use
  Company Number: CA-ROCHE-1276074

PATIENT
  Age: 69 Year
  Sex: Male

DRUGS (7)
  1. ZELBORAF [Suspect]
     Indication: METASTATIC MALIGNANT MELANOMA
     Route: 048
     Dates: start: 20130613
  2. METFORMIN [Concomitant]
  3. CRESTOR [Concomitant]
  4. RAMIPRIL [Concomitant]
     Indication: HYPERTENSION
  5. GLYBURIDE [Concomitant]
  6. CELEBREX [Concomitant]
     Indication: BACK PAIN
     Route: 065
  7. ASA [Concomitant]
     Dosage: LOW DOSE
     Route: 065

REACTIONS (5)
  - Vomiting [Unknown]
  - Diarrhoea [Unknown]
  - Dehydration [Unknown]
  - Coma [Unknown]
  - Dyspnoea [Unknown]
